FAERS Safety Report 19063993 (Version 3)
Quarter: 2022Q4

REPORT INFORMATION
  Report Type: Report from Study
  Country: TW (occurrence: TW)
  Receive Date: 20210326
  Receipt Date: 20221020
  Transmission Date: 20230112
  Serious: Yes (Hospitalization)
  Sender: FDA-Public Use
  Company Number: TW-TAKEDA-ALL1-2013-09083

PATIENT
  Age: 16 Year
  Sex: Male
  Weight: 44 kg

DRUGS (37)
  1. IDURSULFASE [Suspect]
     Active Substance: IDURSULFASE
     Indication: Mucopolysaccharidosis II
     Dosage: 18 MILLIGRAM
     Route: 041
     Dates: start: 20110623
  2. IDURSULFASE [Suspect]
     Active Substance: IDURSULFASE
     Dosage: 0.4 MILLIGRAM/KILOGRAM, 1/WEEK
     Route: 065
     Dates: start: 20130319
  3. IDURSULFASE [Suspect]
     Active Substance: IDURSULFASE
     Dosage: 0.51 MILLIGRAM/KILOGRAM, 1/WEEK
     Route: 042
     Dates: start: 20141126, end: 20141126
  4. IDURSULFASE [Suspect]
     Active Substance: IDURSULFASE
     Dosage: 0.48 MILLIGRAM/KILOGRAM, 1/WEEK
     Route: 042
     Dates: start: 20111221, end: 20120128
  5. IDURSULFASE [Suspect]
     Active Substance: IDURSULFASE
     Dosage: 0.5 MILLIGRAM/KILOGRAM, 1/WEEK
     Route: 042
     Dates: start: 20110907, end: 20111207
  6. IDURSULFASE [Suspect]
     Active Substance: IDURSULFASE
     Dosage: 0.59 MILLIGRAM/KILOGRAM, 1/WEEK
     Route: 042
     Dates: start: 20201209
  7. IDURSULFASE [Suspect]
     Active Substance: IDURSULFASE
     Dosage: 0.58 MILLIGRAM/KILOGRAM, 1/WEEK
     Route: 042
     Dates: start: 20220704
  8. Fucon [Concomitant]
     Indication: Respiratory disorder
     Dosage: 20 MILLIGRAM, TID
     Route: 048
     Dates: start: 20130727, end: 20130801
  9. Fucon [Concomitant]
     Dosage: UNK
     Route: 048
     Dates: start: 20130727, end: 20130801
  10. KETOPROFEN [Concomitant]
     Active Substance: KETOPROFEN
     Indication: Pain
     Dosage: 30 MILLIGRAM, QID
     Route: 042
     Dates: start: 20130725, end: 20130725
  11. KETOPROFEN [Concomitant]
     Active Substance: KETOPROFEN
     Dosage: UNK
     Route: 042
     Dates: start: 20130725, end: 20130725
  12. DICLOFENAC [Concomitant]
     Active Substance: DICLOFENAC
     Indication: Pain
     Dosage: 25 MILLIGRAM, QID
     Route: 048
     Dates: start: 20130725, end: 20130801
  13. DICLOFENAC [Concomitant]
     Active Substance: DICLOFENAC
     Indication: Antiinflammatory therapy
     Dosage: UNK
     Route: 048
     Dates: start: 20130725, end: 20130801
  14. DICLOFENAC [Concomitant]
     Active Substance: DICLOFENAC
     Dosage: UNK
     Route: 048
     Dates: start: 20141119, end: 20141123
  15. DICLOFENAC [Concomitant]
     Active Substance: DICLOFENAC
     Dosage: UNK
     Route: 048
     Dates: start: 20140919, end: 20141123
  16. AMOXICILLIN [Concomitant]
     Active Substance: AMOXICILLIN
     Indication: Anti-infective therapy
     Dosage: 250 MG, 4X/DAY:QID
     Route: 048
     Dates: start: 20130725, end: 20130801
  17. AMOXICILLIN [Concomitant]
     Active Substance: AMOXICILLIN
     Dosage: UNK
     Route: 048
     Dates: start: 20130725, end: 20130801
  18. CEFAZOLIN SODIUM [Concomitant]
     Active Substance: CEFAZOLIN SODIUM
     Indication: Anti-infective therapy
     Dosage: 1 GRAM, QID
     Route: 042
     Dates: start: 20130725, end: 20130726
  19. CEFAZOLIN SODIUM [Concomitant]
     Active Substance: CEFAZOLIN SODIUM
     Indication: Antibiotic therapy
     Dosage: 1 GRAM
     Route: 042
     Dates: start: 20130724, end: 20130725
  20. CEFAZOLIN SODIUM [Concomitant]
     Active Substance: CEFAZOLIN SODIUM
     Dosage: UNK
     Route: 042
     Dates: start: 20130724, end: 20130725
  21. CEFAZOLIN SODIUM [Concomitant]
     Active Substance: CEFAZOLIN SODIUM
     Dosage: UNK
     Route: 042
     Dates: start: 20130725, end: 20130726
  22. CEFAZOLIN SODIUM [Concomitant]
     Active Substance: CEFAZOLIN SODIUM
     Dosage: UNK
     Route: 042
     Dates: start: 20141118, end: 20141118
  23. HYDROXYZINE [Concomitant]
     Active Substance: HYDROXYZINE HYDROCHLORIDE
     Indication: Premedication
     Dosage: UNK
     Route: 048
     Dates: start: 20110819
  24. ACETYLCYSTEINE [Concomitant]
     Active Substance: ACETYLCYSTEINE
     Indication: Respiratory disorder
     Dosage: UNK
     Route: 048
     Dates: start: 20130301, end: 20130401
  25. ACETAMINOPHEN [Concomitant]
     Active Substance: ACETAMINOPHEN
     Indication: Pain
     Dosage: UNK
     Route: 048
     Dates: start: 20141108, end: 20141111
  26. MORPHINE [Concomitant]
     Active Substance: MORPHINE
     Indication: Pain
     Dosage: UNK
     Route: 048
     Dates: start: 20141118, end: 20141121
  27. ALUMINIUM DIHYDROXYALLANTOINATE [Concomitant]
     Indication: Antacid therapy
     Dosage: UNK
     Route: 048
     Dates: start: 20141119, end: 20141123
  28. IODINE AQUEOUS [Concomitant]
     Indication: Skin disorder
     Dosage: UNK
     Route: 061
     Dates: start: 20141119, end: 20141119
  29. CARVEDILOL [Concomitant]
     Active Substance: CARVEDILOL
     Indication: Cardiac failure
     Dosage: UNK
     Route: 048
     Dates: start: 20150824, end: 20150921
  30. CARVEDILOL [Concomitant]
     Active Substance: CARVEDILOL
     Dosage: UNK
     Route: 048
     Dates: start: 20151116, end: 20160104
  31. SPIRONOLACTONE [Concomitant]
     Active Substance: SPIRONOLACTONE
     Indication: Cardiac failure
     Dosage: UNK
     Route: 048
     Dates: start: 20151116, end: 20160104
  32. Deflam [Concomitant]
     Indication: Phimosis
     Dosage: UNK
     Route: 048
     Dates: start: 20220311, end: 20220314
  33. IWELL [Concomitant]
     Indication: Phimosis
     Dosage: UNK
     Route: 048
     Dates: start: 20220311, end: 20220314
  34. CEPHALEXIN [Concomitant]
     Active Substance: CEPHALEXIN
     Indication: Phimosis
     Dosage: UNK
     Route: 048
     Dates: start: 20220311, end: 20220314
  35. Biomycin [Concomitant]
     Indication: Phimosis
     Dosage: UNK
     Route: 061
     Dates: start: 20220311, end: 20220318
  36. PEICHIA [Concomitant]
     Indication: Antacid therapy
     Dosage: UNK
     Route: 048
     Dates: start: 20141119, end: 20141123
  37. POVIDONE-IODINE [Concomitant]
     Active Substance: POVIDONE-IODINE
     Indication: Product used for unknown indication
     Dosage: UNK
     Route: 061
     Dates: start: 20141119, end: 20141119

REACTIONS (3)
  - Tonsillar hypertrophy [Recovered/Resolved]
  - Otitis media [Recovered/Resolved]
  - Middle ear effusion [Recovered/Resolved]

NARRATIVE: CASE EVENT DATE: 20130724
